FAERS Safety Report 8826715 (Version 1)
Quarter: 2012Q4

REPORT INFORMATION
  Report Type: 
  Country: GB (occurrence: GB)
  Receive Date: 20121005
  Receipt Date: 20121005
  Transmission Date: 20130627
  Serious: Yes (Hospitalization)
  Sender: FDA-Public Use
  Company Number: PHHY2012GB084701

PATIENT
  Age: 69 Year
  Sex: Female

DRUGS (13)
  1. ISOSORBIDE MONONITRATE [Suspect]
     Dosage: 60 mg, QD
  2. PAROXETINE [Suspect]
     Dosage: 30 mg, QD
  3. DIAZEPAM [Suspect]
     Dosage: 5 mg, BID
  4. SALBUTAMOL [Suspect]
     Dosage: Two puffs when required. Dose - 2, units - not specified
  5. GLICLAZIDE [Suspect]
     Dosage: 160 mg, BID
  6. LANSOPRAZOLE [Suspect]
     Dosage: 30 mg, QD
  7. FELODIPINE [Suspect]
     Dosage: 10 mg, QD
  8. ZOCOR [Suspect]
     Dosage: 40 mg, QD
  9. FUROSEMIDE [Suspect]
     Dosage: 40 mg, QD
  10. ASPIRIN [Suspect]
     Dosage: 75 mg, QD
  11. CYCLIZINE [Suspect]
     Dosage: 50 mg, TID
  12. HYOSCINE BUTYLBROMIDE [Suspect]
     Dosage: 20 mg, BID
  13. BUTYLSCOPOLAMINE BROMIDE [Suspect]
     Dosage: 20 mg, BID

REACTIONS (1)
  - Angioedema [Unknown]
